FAERS Safety Report 10168194 (Version 1)
Quarter: 2014Q2

REPORT INFORMATION
  Report Type: Spontaneous
  Country: US (occurrence: US)
  Receive Date: 20140512
  Receipt Date: 20140512
  Transmission Date: 20141212
  Serious: No
  Sender: FDA-Public Use
  Company Number: US-ASTRAZENECA-2013SE76397

PATIENT
  Age: 59 Year
  Sex: Female
  Weight: 58.1 kg

DRUGS (6)
  1. FASLODEX [Suspect]
     Indication: BREAST CANCER METASTATIC
     Dosage: MONTHLY
     Route: 030
     Dates: start: 20130923
  2. FASLODEX [Suspect]
     Indication: BREAST CANCER METASTATIC
     Dosage: LOADING DOSE, EVERY TWO WEEKS
     Route: 030
  3. TRAMADOL [Concomitant]
     Indication: PAIN
  4. IBUPROFEN [Concomitant]
     Indication: PAIN
  5. LORAZEPAM [Concomitant]
     Indication: ANXIETY
  6. LORAZEPAM [Concomitant]
     Indication: AGITATION

REACTIONS (7)
  - Constipation [Not Recovered/Not Resolved]
  - Contusion [Unknown]
  - Burning sensation [Unknown]
  - Hypoaesthesia [Unknown]
  - Pain [Unknown]
  - Injection site mass [Unknown]
  - Injection site pain [Not Recovered/Not Resolved]
